FAERS Safety Report 5046868-X (Version None)
Quarter: 2006Q3

REPORT INFORMATION
  Report Type: 
  Country: None (occurrence: None)
  Receive Date: 20060705
  Receipt Date: 20060705
  Transmission Date: 20061208
  Serious: Yes (Disabling)
  Sender: FDA-Public Use
  Company Number: None

PATIENT
  Age: 49 Year
  Sex: Female
  Weight: 60.3284 kg

DRUGS (1)
  1. KETEK [Suspect]
     Indication: BRONCHITIS
     Dosage: 1 TABLET PER DAY 1 WEEK
     Dates: start: 20060102, end: 20060106

REACTIONS (5)
  - CARDIOVASCULAR DISORDER [None]
  - DRUG INEFFECTIVE [None]
  - GAIT DISTURBANCE [None]
  - OEDEMA PERIPHERAL [None]
  - SKIN LESION [None]
